FAERS Safety Report 9885225 (Version 1)
Quarter: 2014Q1

REPORT INFORMATION
  Report Type: Spontaneous
  Country: US (occurrence: None)
  Receive Date: 20140207
  Receipt Date: 20140207
  Transmission Date: 20141002
  Serious: No
  Sender: FDA-Public Use
  Company Number: None

PATIENT
  Age: 47 Year
  Sex: Male

DRUGS (1)
  1. MYCOPHENOLATE [Suspect]
     Route: 048
     Dates: start: 20140108

REACTIONS (7)
  - Rash [None]
  - Malaise [None]
  - Pain [None]
  - Nausea [None]
  - Decreased appetite [None]
  - Lupus-like syndrome [None]
  - Condition aggravated [None]
